FAERS Safety Report 5799812-1 (Version None)
Quarter: 2008Q3

REPORT INFORMATION
  Report Type: 
  Country: None (occurrence: None)
  Receive Date: 20080702
  Receipt Date: 20080702
  Transmission Date: 20090109
  Serious: No
  Sender: FDA-Public Use
  Company Number: None

PATIENT
  Age: 71 Year
  Sex: Female

DRUGS (1)
  1. DIGITEK TABS B146; 0.25MG [Suspect]

REACTIONS (2)
  - DIZZINESS [None]
  - STOMACH DISCOMFORT [None]
